FAERS Safety Report 6216434-9 (Version None)
Quarter: 2009Q2

REPORT INFORMATION
  Report Type: 
  Country: None (occurrence: None)
  Receive Date: 20090603
  Receipt Date: 20090603
  Transmission Date: 20091009
  Serious: No
  Sender: FDA-Public Use
  Company Number: None

PATIENT
  Sex: Male
  Weight: 100 kg

DRUGS (2)
  1. CRESTOR [Suspect]
     Indication: BLOOD CHOLESTEROL INCREASED
     Dosage: CRESTOR DAILY ORAL
     Route: 048
     Dates: start: 20070101, end: 20090101
  2. LEVAQUIN [Suspect]
     Indication: INFECTION
     Dosage: LEVAQUIN DAILY ORAL
     Route: 048
     Dates: start: 20081001, end: 20090101

REACTIONS (9)
  - BLOOD CREATINE PHOSPHOKINASE INCREASED [None]
  - DRUG TOXICITY [None]
  - FATIGUE [None]
  - INFLUENZA [None]
  - MALAISE [None]
  - MEDICATION ERROR [None]
  - MYALGIA [None]
  - PAIN [None]
  - PROSTATE INFECTION [None]
